FAERS Safety Report 5846595-2 (Version None)
Quarter: 2008Q3

REPORT INFORMATION
  Report Type: 
  Country: None (occurrence: None)
  Receive Date: 20080815
  Receipt Date: 20080808
  Transmission Date: 20090109
  Serious: Yes (Other)
  Sender: FDA-Public Use
  Company Number: FR-ABBOTT-08P-056-0469851-00

PATIENT
  Age: 21 Month
  Sex: Male

DRUGS (2)
  1. DEPAKENE [Suspect]
     Indication: STATUS EPILEPTICUS
     Route: 065
     Dates: start: 20080616
  2. CARBAMAZEPINE [Concomitant]
     Indication: DRUG USE FOR UNKNOWN INDICATION
     Route: 050
     Dates: start: 20080613, end: 20080613

REACTIONS (2)
  - BLOOD ALKALINE PHOSPHATASE INCREASED [None]
  - EPILEPSY [None]
